FAERS Safety Report 20101997 (Version 1)
Quarter: 2021Q4

REPORT INFORMATION
  Report Type: Spontaneous
  Country: GB (occurrence: None)
  Receive Date: 20211122
  Receipt Date: 20211122
  Transmission Date: 20220303
  Serious: Yes (Disabling, Other)
  Sender: FDA-Public Use
  Company Number: None

PATIENT
  Age: 38 Year
  Sex: Female
  Weight: 63 kg

DRUGS (7)
  1. CLOBETASOL [Suspect]
     Active Substance: CLOBETASOL
     Indication: Eczema
     Dosage: FREQUENCY : TWICE A DAY;?
     Route: 062
     Dates: start: 20200701, end: 20210601
  2. BETNOVATE [Suspect]
     Active Substance: BETAMETHASONE
     Indication: Eczema
     Dosage: FREQUENCY : TWICE A DAY;?
     Route: 062
     Dates: start: 20200701, end: 20210601
  3. IRON WITH VITAMIN C [Concomitant]
  4. PROBIOTIC [Concomitant]
  5. VITAMIN D + K2 [Concomitant]
  6. VITAMINS [Concomitant]
     Active Substance: VITAMINS
  7. ALGAE OMEGA 3 [Concomitant]

REACTIONS (5)
  - Eczema [None]
  - Topical steroid withdrawal reaction [None]
  - Steroid dependence [None]
  - Eye swelling [None]
  - Loss of personal independence in daily activities [None]

NARRATIVE: CASE EVENT DATE: 20210601
